FAERS Safety Report 8090686 (Version 4)
Quarter: 2012Q4

REPORT INFORMATION
  Report Type: 
  Country: US (occurrence: US)
  Receive Date: 20110815
  Receipt Date: 20120830
  Transmission Date: 20130627
  Serious: Yes (Hospitalization, Other)
  Sender: FDA-Public Use
  Company Number: US-ASTRAZENECA-2010SE61080

PATIENT
  Age: 65 Year
  Sex: Male

DRUGS (3)
  1. SYMBICORT PMDI [Suspect]
     Dosage: 160/4.5 mcg UNKNOWN
     Route: 055
  2. NEXIUM [Suspect]
     Route: 048
  3. ADVAIR [Concomitant]

REACTIONS (9)
  - Respiratory disorder [Unknown]
  - Pneumonia [Unknown]
  - Life expectancy shortened [Unknown]
  - Hip fracture [Unknown]
  - Spinal fracture [Unknown]
  - Bone disorder [Unknown]
  - Chronic obstructive pulmonary disease [Unknown]
  - Pulmonary fibrosis [Unknown]
  - Dyspnoea [Unknown]
